FAERS Safety Report 16326719 (Version 3)
Quarter: 2019Q2

REPORT INFORMATION
  Report Type: Spontaneous
  Country: JP (occurrence: JP)
  Receive Date: 20190517
  Receipt Date: 20190524
  Transmission Date: 20190711
  Serious: Yes (Death, Hospitalization, Other)
  Sender: FDA-Public Use
  Company Number: JP-ELI_LILLY_AND_COMPANY-JP201905007397

PATIENT
  Sex: Female

DRUGS (11)
  1. VERZENIO [Suspect]
     Active Substance: ABEMACICLIB
     Indication: BREAST CANCER RECURRENT
     Dosage: 150 MG, BID
     Route: 048
     Dates: start: 20190107, end: 20190513
  2. NITRAZEPAM [Concomitant]
     Active Substance: NITRAZEPAM
  3. LIMAS [Concomitant]
     Active Substance: LITHIUM CARBONATE
  4. AMANTADINE HYDROCHLORIDE. [Concomitant]
     Active Substance: AMANTADINE HYDROCHLORIDE
  5. SERTRALINE [Concomitant]
     Active Substance: SERTRALINE HYDROCHLORIDE
  6. ENSURE ACTI M2 [Concomitant]
  7. SEDIEL [Concomitant]
     Active Substance: TANDOSPIRONE
  8. FASLODEX [Concomitant]
     Active Substance: FULVESTRANT
     Indication: BREAST CANCER RECURRENT
     Dosage: 500 MG, MONTHLY (1/M)
     Route: 030
     Dates: start: 20170821, end: 20190502
  9. DAIKENCHUTO [Concomitant]
     Active Substance: HERBALS
  10. SULPIRIDE [Concomitant]
     Active Substance: SULPIRIDE
  11. OLANZAPINE OD [Concomitant]
     Active Substance: OLANZAPINE

REACTIONS (8)
  - Acute respiratory distress syndrome [Unknown]
  - Renal disorder [Unknown]
  - Hypophagia [Unknown]
  - Dehydration [Unknown]
  - Dysphagia [Unknown]
  - Interstitial lung disease [Fatal]
  - Oedema peripheral [Unknown]
  - Decreased appetite [Unknown]

NARRATIVE: CASE EVENT DATE: 20190307
